FAERS Safety Report 5869295-1 (Version None)
Quarter: 2008Q3

REPORT INFORMATION
  Report Type: 
  Country: None (occurrence: None)
  Receive Date: 20080828
  Receipt Date: 20080812
  Transmission Date: 20090109
  Serious: Yes (Hospitalization)
  Sender: FDA-Public Use
  Company Number: WAES 0808USA02668

PATIENT
  Age: 76 Year
  Sex: Male
  Weight: 68.9467 kg

DRUGS (25)
  1. CAP VORINOSTAT UNK [Suspect]
     Indication: ACUTE MYELOID LEUKAEMIA
     Dosage: 400 MG/DAILY/PO
     Route: 048
     Dates: start: 20080115, end: 20080211
  2. CAP VORINOSTAT UNK [Suspect]
     Indication: ACUTE MYELOID LEUKAEMIA
     Dosage: 400 MG/DAILY/PO
     Route: 048
     Dates: start: 20080212, end: 20080310
  3. CAP VORINOSTAT UNK [Suspect]
     Indication: ACUTE MYELOID LEUKAEMIA
     Dosage: 400 MG/DAILY/PO
     Route: 048
     Dates: start: 20080311, end: 20080421
  4. CAP VORINOSTAT UNK [Suspect]
     Indication: ACUTE MYELOID LEUKAEMIA
     Dosage: 400 MG/DAILY/PO
     Route: 048
     Dates: start: 20080602, end: 20080615
  5. INJ DECITABINE UNK [Suspect]
     Indication: ACUTE MYELOID LEUKAEMIA
     Dosage: 37.4 MG/DAILY/IV, 37.2 MG/DAILY/IV, 36.8 MG/DAILY/IV, 36.6 MG/DAILY/IV
     Route: 042
     Dates: start: 20080115, end: 20080119
  6. INJ DECITABINE UNK [Suspect]
     Indication: ACUTE MYELOID LEUKAEMIA
     Dosage: 37.4 MG/DAILY/IV, 37.2 MG/DAILY/IV, 36.8 MG/DAILY/IV, 36.6 MG/DAILY/IV
     Route: 042
     Dates: start: 20080212, end: 20080216
  7. INJ DECITABINE UNK [Suspect]
     Indication: ACUTE MYELOID LEUKAEMIA
     Dosage: 37.4 MG/DAILY/IV, 37.2 MG/DAILY/IV, 36.8 MG/DAILY/IV, 36.6 MG/DAILY/IV
     Route: 042
     Dates: start: 20080311, end: 20080315
  8. INJ DECITABINE UNK [Suspect]
     Indication: ACUTE MYELOID LEUKAEMIA
     Dosage: 37.4 MG/DAILY/IV, 37.2 MG/DAILY/IV, 36.8 MG/DAILY/IV, 36.6 MG/DAILY/IV
     Route: 042
     Dates: start: 20080421, end: 20080425
  9. INJ DECITABINE UNK [Suspect]
     Indication: ACUTE MYELOID LEUKAEMIA
     Dosage: 37.4 MG/DAILY/IV, 37.2 MG/DAILY/IV, 36.8 MG/DAILY/IV, 36.6 MG/DAILY/IV
     Route: 042
     Dates: start: 20080602, end: 20080606
  10. AVELOX [Concomitant]
  11. BENADRYL [Concomitant]
  12. COMPAZINE [Concomitant]
  13. DIOVAN [Concomitant]
  14. FLOMAX [Concomitant]
  15. IMODIUM [Concomitant]
  16. KEFLEX [Concomitant]
  17. TUMS [Concomitant]
  18. TYLENOL (CAPLET) [Concomitant]
  19. ACYCLOVIR [Concomitant]
  20. DICYCLOMINE HYDROCHLORIDE [Concomitant]
  21. MAGNESIUM (UNSPECIFIED) [Concomitant]
  22. OMEGA-3 MARINE TRIGLYCERIDES [Concomitant]
  23. ONDANSETRON [Concomitant]
  24. VITAMIN D (UNSPECIFIED) [Concomitant]
  25. VITAMINS (UNSPECIFIED) [Concomitant]

REACTIONS (1)
  - FEBRILE NEUTROPENIA [None]
